FAERS Safety Report 9735661 (Version 3)
Quarter: 2015Q1

REPORT INFORMATION
  Report Type: Report from Study
  Country: JP (occurrence: JP)
  Receive Date: 20131206
  Receipt Date: 20150303
  Transmission Date: 20150721
  Serious: Yes (Death, Other)
  Sender: FDA-Public Use
  Company Number: PHHY2013JP124025

PATIENT
  Age: 29 Year
  Sex: Female
  Weight: 49 kg

DRUGS (27)
  1. CLOZARIL [Suspect]
     Active Substance: CLOZAPINE
     Dosage: 300 MG, BID
     Route: 048
     Dates: start: 20130723, end: 20130724
  2. CLOZARIL [Suspect]
     Active Substance: CLOZAPINE
     Dosage: 400 MG, BID
     Route: 048
     Dates: start: 20130803, end: 20130805
  3. CLOZARIL [Suspect]
     Active Substance: CLOZAPINE
     Dosage: 450 MG, BID
     Route: 048
     Dates: start: 20130809, end: 20130811
  4. CLOZARIL [Suspect]
     Active Substance: CLOZAPINE
     Dosage: 200 MG, BID
     Route: 048
     Dates: start: 20130710, end: 20130712
  5. CLOZARIL [Suspect]
     Active Substance: CLOZAPINE
     Dosage: 225 MG, BID
     Route: 048
     Dates: start: 20130713, end: 20130716
  6. CLOZARIL [Suspect]
     Active Substance: CLOZAPINE
     Dosage: 325 MG, BID
     Route: 048
     Dates: start: 20130725, end: 20130727
  7. CLOZARIL [Suspect]
     Active Substance: CLOZAPINE
     Dosage: 425 MG, BID
     Route: 048
     Dates: start: 20130806, end: 20130808
  8. CLOZARIL [Suspect]
     Active Substance: CLOZAPINE
     Dosage: 500 MG, BID
     Route: 048
     Dates: start: 20130815, end: 20130825
  9. TEGRETOL [Concomitant]
     Active Substance: CARBAMAZEPINE
     Indication: SCHIZOPHRENIA, UNDIFFERENTIATED TYPE
     Dosage: 700 MG, UNK
     Route: 048
  10. CLOZARIL [Suspect]
     Active Substance: CLOZAPINE
     Dosage: 25 MG, QD
     Route: 048
     Dates: start: 20130619, end: 20130621
  11. CLOZARIL [Suspect]
     Active Substance: CLOZAPINE
     Dosage: 50 MG, BID
     Route: 048
     Dates: start: 20130622, end: 20130624
  12. CLOZARIL [Suspect]
     Active Substance: CLOZAPINE
     Dosage: 175 MG, BID
     Route: 048
     Dates: start: 20130707, end: 20130709
  13. CLOZARIL [Suspect]
     Active Substance: CLOZAPINE
     Dosage: 75 MG, BID
     Route: 048
     Dates: start: 20130625, end: 20130627
  14. CLOZARIL [Suspect]
     Active Substance: CLOZAPINE
     Dosage: 350 MG, BID
     Route: 048
     Dates: start: 20130728, end: 20130802
  15. CLOZARIL [Suspect]
     Active Substance: CLOZAPINE
     Dosage: 525 MG, BID
     Route: 048
     Dates: start: 20130826, end: 20130909
  16. CLOZARIL [Suspect]
     Active Substance: CLOZAPINE
     Dosage: 575 MG, BID
     Route: 048
     Dates: start: 20130917, end: 20130925
  17. LIMAS [Concomitant]
     Active Substance: LITHIUM CARBONATE
     Indication: SCHIZOPHRENIA, UNDIFFERENTIATED TYPE
     Dosage: 400 MG, UNK
     Route: 048
  18. CLOZARIL [Suspect]
     Active Substance: CLOZAPINE
     Dosage: 125 MG, BID
     Route: 048
     Dates: start: 20130701, end: 20130703
  19. CLOZARIL [Suspect]
     Active Substance: CLOZAPINE
     Dosage: 550 MG, BID
     Route: 048
     Dates: start: 20130910, end: 20130916
  20. CLOZARIL [Suspect]
     Active Substance: CLOZAPINE
     Dosage: 475 MG, BID
     Route: 048
     Dates: start: 20130812, end: 20130814
  21. AKINETON [Concomitant]
     Active Substance: BIPERIDEN HYDROCHLORIDE
     Indication: SCHIZOPHRENIA, UNDIFFERENTIATED TYPE
     Dosage: 02 MG
     Route: 048
     Dates: start: 20130712, end: 20130712
  22. CLOZARIL [Suspect]
     Active Substance: CLOZAPINE
     Indication: SCHIZOPHRENIA, UNDIFFERENTIATED TYPE
     Route: 048
     Dates: start: 20130618, end: 20130618
  23. CLOZARIL [Suspect]
     Active Substance: CLOZAPINE
     Dosage: 250 MG, BID
     Route: 048
     Dates: start: 20130717, end: 20130719
  24. CLOZARIL [Suspect]
     Active Substance: CLOZAPINE
     Dosage: 275 MG, BID
     Route: 048
     Dates: start: 20130720, end: 20130722
  25. CLOZARIL [Suspect]
     Active Substance: CLOZAPINE
     Dosage: 100 MG, BID
     Route: 048
     Dates: start: 20130628, end: 20130630
  26. CLOZARIL [Suspect]
     Active Substance: CLOZAPINE
     Dosage: 150 MG, BID
     Route: 048
     Dates: start: 20130704, end: 20130706
  27. CLOZARIL [Suspect]
     Active Substance: CLOZAPINE
     Dosage: 600 MG, QID
     Route: 048
     Dates: start: 20130926

REACTIONS (4)
  - Neutrophil count increased [Recovered/Resolved]
  - Hypertension [Unknown]
  - Completed suicide [Fatal]
  - Lymphocyte count decreased [Recovered/Resolved]

NARRATIVE: CASE EVENT DATE: 20130629
